FAERS Safety Report 6608891-0 (Version None)
Quarter: 2010Q1

REPORT INFORMATION
  Report Type: 
  Country: None (occurrence: None)
  Receive Date: 20100301
  Receipt Date: 20100218
  Transmission Date: 20100710
  Serious: Yes (Other)
  Sender: FDA-Public Use
  Company Number: US-BAYER-201011854BCC

PATIENT
  Age: 76 Year
  Sex: Female

DRUGS (19)
  1. ASPIRIN [Suspect]
     Indication: DRUG USE FOR UNKNOWN INDICATION
     Dosage: UNIT DOSE: 81 MG
     Route: 048
     Dates: end: 20100111
  2. ASPIRIN [Suspect]
     Dosage: UNIT DOSE: 81 MG
     Route: 048
     Dates: start: 20100120
  3. LOVENOX [Suspect]
     Indication: ATRIAL FIBRILLATION
     Dosage: UNIT DOSE: 60 MG
     Route: 065
     Dates: start: 20100110, end: 20100113
  4. COUMADIN [Suspect]
     Indication: ATRIAL FIBRILLATION
     Route: 065
     Dates: start: 20100101, end: 20100113
  5. HEPARIN [Suspect]
     Indication: DRUG USE FOR UNKNOWN INDICATION
  6. PLAVIX [Suspect]
     Indication: DRUG USE FOR UNKNOWN INDICATION
     Route: 048
     Dates: end: 20100111
  7. SYNTHROID [Concomitant]
  8. BUSPAR [Concomitant]
  9. CENTRUM [Concomitant]
  10. POTASSIUM CHLORIDE [Concomitant]
  11. LASIX [Concomitant]
  12. METFORMIN HYDROCHLORIDE [Concomitant]
  13. NIFEDIPINE [Concomitant]
  14. NITROGLYCERIN [Concomitant]
  15. PREDNISONE [Concomitant]
  16. RANITIDINE [Concomitant]
  17. WELCHOL [Concomitant]
  18. ZETIA [Concomitant]
  19. QUINAPRIL [Concomitant]

REACTIONS (9)
  - ABDOMINAL PAIN [None]
  - ANAEMIA [None]
  - ASTHENIA [None]
  - ATRIAL FIBRILLATION [None]
  - DEHYDRATION [None]
  - NAUSEA [None]
  - PALPITATIONS [None]
  - RECTAL HAEMORRHAGE [None]
  - TACHYCARDIA [None]
